FAERS Safety Report 8205475-8 (Version None)
Quarter: 2012Q1

REPORT INFORMATION
  Report Type: 
  Country: None (occurrence: None)
  Receive Date: 20120313
  Receipt Date: 20120301
  Transmission Date: 20120608
  Serious: Yes (Hospitalization, Other)
  Sender: FDA-Public Use
  Company Number: MX-BRISTOL-MYERS SQUIBB COMPANY-16385007

PATIENT
  Age: 59 Year
  Sex: Female
  Weight: 80 kg

DRUGS (15)
  1. MYCOPHENOLATE MOFETIL (CELLCEPT) [Concomitant]
     Indication: PROPHYLAXIS AGAINST TRANSPLANT REJECTION
     Route: 048
     Dates: start: 19930101
  2. PROGESTERONE [Concomitant]
     Indication: MENOPAUSAL SYMPTOMS
     Route: 048
  3. CLONAZEPAM [Concomitant]
     Indication: INSOMNIA
     Route: 048
     Dates: start: 19670101
  4. ZYLOPRIM [Concomitant]
     Dosage: 1DF=1 TAB
     Route: 048
  5. IRBESARTAN [Suspect]
     Indication: HYPERTENSION
     Dosage: 300MG 1/2 TAB PER 12 HRS 1997-ONG 150MG 1 PER 24HRS 19DEC11-ONG
     Route: 048
     Dates: start: 19970101, end: 20111219
  6. EPOGEN [Concomitant]
     Indication: ANAEMIA
     Dates: start: 19900101
  7. RAMIPRIL + FELODIPINE [Suspect]
     Indication: HYPERTENSION
     Dosage: TABS 1 TAB PER 24 HRS 19DEC11
     Route: 048
     Dates: start: 19920101, end: 20111219
  8. SANDIMMUNE [Concomitant]
     Indication: PROPHYLAXIS AGAINST TRANSPLANT REJECTION
     Route: 048
     Dates: start: 19930101
  9. NOVOTIRAL [Concomitant]
     Indication: HYPERTHYROIDISM
     Dosage: 1DF=1TAB
     Route: 048
     Dates: start: 19780101
  10. METFORMIN HCL [Suspect]
     Indication: TYPE 2 DIABETES MELLITUS
     Route: 048
     Dates: start: 19930101
  11. CALCITRIOL [Concomitant]
     Indication: OSTEOPOROSIS
     Dosage: TABS
     Route: 048
     Dates: start: 19900101
  12. SENOKOT [Concomitant]
     Indication: CONSTIPATION
     Route: 048
     Dates: start: 20080101
  13. ESTROGENS, CONJUGATED [Concomitant]
     Indication: MENOPAUSAL SYMPTOMS
     Dosage: TABS
     Route: 048
     Dates: start: 20100101
  14. NEXIUM [Concomitant]
     Indication: GASTRITIS
     Dosage: TABS
     Route: 048
     Dates: start: 20080101
  15. PREDNISONE [Concomitant]
     Dosage: TABS
     Route: 048

REACTIONS (11)
  - HYPERCHOLESTEROLAEMIA [None]
  - DIARRHOEA [None]
  - HAEMORRHOIDS [None]
  - VARICOSE VEIN [None]
  - HYPERKALAEMIA [None]
  - HYPERTENSION [None]
  - HYPERTRIGLYCERIDAEMIA [None]
  - VENOUS INSUFFICIENCY [None]
  - GASTRITIS [None]
  - DEHYDRATION [None]
  - CONSTIPATION [None]
